FAERS Safety Report 11392063 (Version 1)
Quarter: 2015Q3

REPORT INFORMATION
  Report Type: Spontaneous
  Country: US (occurrence: None)
  Receive Date: 20150817
  Receipt Date: 20150817
  Transmission Date: 20151125
  Serious: Yes (Other)
  Sender: FDA-Public Use
  Company Number: 2015SUP00031

PATIENT
  Age: 42 Year
  Sex: Female
  Weight: 74.8 kg

DRUGS (4)
  1. VITAMIN D [Concomitant]
     Active Substance: CHOLECALCIFEROL
  2. OXTELLAR XR [Suspect]
     Active Substance: OXCARBAZEPINE
     Indication: SEIZURE
     Dosage: 300 MG, 2X/DAY, ORAL
     Route: 048
     Dates: start: 2014, end: 20150310
  3. ATIVAN [Concomitant]
     Active Substance: LORAZEPAM
  4. SEROQUEL [Concomitant]
     Active Substance: QUETIAPINE FUMARATE

REACTIONS (5)
  - Prescribed underdose [None]
  - Aphasia [None]
  - Feeling abnormal [None]
  - Speech disorder [None]
  - Seizure [None]

NARRATIVE: CASE EVENT DATE: 201503
